FAERS Safety Report 4965466-7 (Version None)
Quarter: 2006Q2

REPORT INFORMATION
  Report Type: 
  Country: None (occurrence: None)
  Receive Date: 20060406
  Receipt Date: 20060328
  Transmission Date: 20061013
  Serious: Yes (Hospitalization, Disabling)
  Sender: FDA-Public Use
  Company Number: US-MERCK-0603USA04584

PATIENT
  Age: 46 Year
  Sex: Male
  Weight: 123 kg

DRUGS (2)
  1. VIOXX [Suspect]
     Indication: PAIN IN EXTREMITY
     Route: 048
     Dates: start: 20010712, end: 20011111
  2. VIOXX [Suspect]
     Route: 048
     Dates: start: 20010712, end: 20011111

REACTIONS (3)
  - CARDIAC DISORDER [None]
  - CHEST PAIN [None]
  - MYOCARDIAL INFARCTION [None]
